FAERS Safety Report 21734634 (Version 1)
Quarter: 2022Q4

REPORT INFORMATION
  Report Type: Spontaneous
  Country: SE (occurrence: SE)
  Receive Date: 20221215
  Receipt Date: 20221215
  Transmission Date: 20230112
  Serious: Yes (Other)
  Sender: FDA-Public Use
  Company Number: SE-SANOFI-01400391

PATIENT
  Age: 84 Year
  Sex: Female

DRUGS (2)
  1. MULTAQ [Suspect]
     Active Substance: DRONEDARONE
     Dosage: 400 MG
  2. OXYCODONE HYDROCHLORIDE [Concomitant]
     Active Substance: OXYCODONE HYDROCHLORIDE

REACTIONS (10)
  - Loss of consciousness [Unknown]
  - Adverse drug reaction [Unknown]
  - Confusional state [Unknown]
  - Fall [Unknown]
  - Nocturia [Unknown]
  - Abdominal pain [Unknown]
  - Chromaturia [Unknown]
  - Diarrhoea [Unknown]
  - Abdominal pain upper [Unknown]
  - Contraindicated product administered [Unknown]
